FAERS Safety Report 5868952-0 (Version None)
Quarter: 2008Q3

REPORT INFORMATION
  Report Type: 
  Country: None (occurrence: None)
  Receive Date: 20080903
  Receipt Date: 20080825
  Transmission Date: 20090109
  Serious: Yes (Other)
  Sender: FDA-Public Use
  Company Number: TW-ROCHE-583055

PATIENT
  Age: 73 Year
  Sex: Male

DRUGS (10)
  1. CAPECITABINE [Suspect]
     Indication: DRUG USE FOR UNKNOWN INDICATION
     Route: 065
  2. BEVACIZUMAB [Suspect]
     Indication: RECTAL CANCER METASTATIC
     Route: 042
  3. TEGAFUR [Concomitant]
     Route: 048
  4. LEVAMISOLE [Concomitant]
     Route: 048
  5. UFT [Concomitant]
     Dosage: MOLAR RATIO REPORTED: 1 : 4, FREQUENCY: DAILY
     Route: 048
  6. FLUOROURACIL [Concomitant]
     Dosage: FORM : INFUSION, DOSAGE REPORTED: 22-HOUR INFUSION FOR 5 CONSECUTIVE DAYS.
  7. LEUCOVORIN CALCIUM [Concomitant]
     Dosage: FORM: INFUSION
  8. IRINOTECAN HCL [Concomitant]
     Dosage: DOSAGE REPORTED: UP TO 100 MG/M^2 WEEKLY FOR 2 WKS OF VERY 3-WK CYCLE, FOR A TOTAL OF 18 DOSES.
  9. CALCIUM FOLINATE [Concomitant]
  10. OXALIPLATIN [Concomitant]
     Dosage: DOSAGE REPORTED: 85 MG/M^2 EVERY TWO WEEKS.

REACTIONS (2)
  - RECTAL CANCER METASTATIC [None]
  - VITREOUS HAEMORRHAGE [None]
